FAERS Safety Report 10949063 (Version 1)
Quarter: 2015Q1

REPORT INFORMATION
  Report Type: Report from Study
  Country: JP (occurrence: JP)
  Receive Date: 20150324
  Receipt Date: 20150324
  Transmission Date: 20150721
  Serious: Yes (Death, Life-Threatening, Other)
  Sender: FDA-Public Use
  Company Number: JP-ASTELLAS-2005JP001361

PATIENT
  Age: 27 Year
  Sex: Male
  Weight: 61 kg

DRUGS (7)
  1. SULPERAZON [Concomitant]
     Active Substance: CEFOPERAZONE SODIUM\SULBACTAM SODIUM
  2. DOYLE [Concomitant]
     Indication: PRODUCT USED FOR UNKNOWN INDICATION
     Dosage: 4.00 G, UNKNOWN/D
     Route: 042
     Dates: start: 20040113, end: 20040118
  3. FOSMICIN S [Concomitant]
     Indication: PRODUCT USED FOR UNKNOWN INDICATION
     Dosage: 4.00 G, UNKNOWN/D
     Route: 042
     Dates: start: 20040120, end: 20040123
  4. SULPERAZON [Concomitant]
     Active Substance: CEFOPERAZONE SODIUM\SULBACTAM SODIUM
     Indication: PRODUCT USED FOR UNKNOWN INDICATION
     Dosage: 2.00 G, UNKNOWN/D
     Route: 042
     Dates: start: 20040126, end: 20040129
  5. MODACIN [Concomitant]
     Active Substance: CEFTAZIDIME
     Indication: PRODUCT USED FOR UNKNOWN INDICATION
     Dosage: 4.00 G, UNKNOWN/D
     Route: 042
     Dates: start: 20040118, end: 20040123
  6. MICAFUNGIN [Suspect]
     Active Substance: MICAFUNGIN
     Dosage: 150.00 MG, UID/QD
     Route: 041
     Dates: start: 20040123, end: 20040129
  7. TARGOCID [Concomitant]
     Active Substance: TEICOPLANIN
     Indication: PRODUCT USED FOR UNKNOWN INDICATION
     Dosage: 400.00 MG, UNKNOWN/D
     Route: 042
     Dates: start: 20040126, end: 20040129

REACTIONS (3)
  - Blood alkaline phosphatase abnormal [Not Recovered/Not Resolved]
  - Blood potassium increased [Not Recovered/Not Resolved]
  - Sepsis [Fatal]

NARRATIVE: CASE EVENT DATE: 20040129
